FAERS Safety Report 5371742-9 (Version None)
Quarter: 2007Q2

REPORT INFORMATION
  Report Type: 
  Country: None (occurrence: None)
  Receive Date: 20070627
  Receipt Date: 20070618
  Transmission Date: 20071010
  Serious: Yes (Other)
  Sender: FDA-Public Use
  Company Number: IT-ELI_LILLY_AND_COMPANY-IT200706005362

PATIENT
  Age: 72 Year

DRUGS (5)
  1. ALIMTA [Suspect]
     Indication: MESOTHELIOMA MALIGNANT
     Dosage: 500 MG/M2, OTHER
  2. CARBOPLATIN [Concomitant]
     Indication: MESOTHELIOMA MALIGNANT
  3. FOLIC ACID [Concomitant]
     Indication: PREMEDICATION
  4. VITAMIN B-12 [Concomitant]
     Indication: PREMEDICATION
  5. CORTICOSTEROIDS [Concomitant]
     Indication: PREMEDICATION

REACTIONS (3)
  - MUCOSAL INFLAMMATION [None]
  - TENDON RUPTURE [None]
  - TENDONITIS [None]
